FAERS Safety Report 5197567-5 (Version None)
Quarter: 2006Q4

REPORT INFORMATION
  Report Type: 
  Country: None (occurrence: None)
  Receive Date: 20061228
  Receipt Date: 20061213
  Transmission Date: 20070319
  Serious: Yes (Other)
  Sender: FDA-Public Use
  Company Number: 2006SP008395

PATIENT
  Sex: Male

DRUGS (3)
  1. TEMODAL [Suspect]
     Indication: GLIOBLASTOMA
     Dosage: 75 MG/M2;
  2. ANTI-EPILEPTICS [Concomitant]
  3. RADIOTHERAPY [Concomitant]

REACTIONS (1)
  - HEPATOTOXICITY [None]
